FAERS Safety Report 8840428 (Version 1)
Quarter: 2012Q4

REPORT INFORMATION
  Report Type: 
  Country: US (occurrence: US)
  Receive Date: 20121015
  Receipt Date: 20121015
  Transmission Date: 20130627
  Serious: Yes (Other)
  Sender: FDA-Public Use
  Company Number: US-ROCHE-1139691

PATIENT
  Sex: Male

DRUGS (8)
  1. PROTROPIN [Suspect]
     Indication: GROWTH HORMONE DEFICIENCY
     Route: 058
  2. PROTROPIN [Suspect]
     Route: 058
  3. VASOTEC [Concomitant]
     Route: 065
  4. LUPRON [Concomitant]
     Route: 058
  5. ADDERALL [Concomitant]
     Dosage: in the morning
     Route: 065
  6. ADDERALL [Concomitant]
     Dosage: in the afternoon
     Route: 065
  7. CLARITIN [Concomitant]
     Route: 045
  8. FLONASE [Concomitant]
     Route: 045

REACTIONS (8)
  - Chest pain [Unknown]
  - Diarrhoea [Unknown]
  - Acne [Unknown]
  - Hypertension [Unknown]
  - Palpitations [Unknown]
  - Hypersensitivity [Unknown]
  - Attention deficit/hyperactivity disorder [Unknown]
  - Hypothyroidism [Unknown]
